FAERS Safety Report 23825958 (Version 1)
Quarter: 2024Q2

REPORT INFORMATION
  Report Type: Spontaneous
  Country: CN (occurrence: CN)
  Receive Date: 20240507
  Receipt Date: 20240507
  Transmission Date: 20240716
  Serious: Yes (Other)
  Sender: FDA-Public Use
  Company Number: CN-SA-SAC20240506000228

PATIENT
  Age: 63 Year
  Sex: Female

DRUGS (2)
  1. OXALIPLATIN [Suspect]
     Active Substance: OXALIPLATIN
     Indication: Neoplasm malignant
     Dosage: 170 MG, QD
     Route: 041
     Dates: start: 20240420, end: 20240420
  2. DEXTROSE [Concomitant]
     Active Substance: DEXTROSE\DEXTROSE MONOHYDRATE
     Indication: Neoplasm malignant
     Dosage: 500 ML
     Route: 065

REACTIONS (1)
  - Drug-induced liver injury [Unknown]

NARRATIVE: CASE EVENT DATE: 20240425
